FAERS Safety Report 18975394 (Version 1)
Quarter: 2021Q1

REPORT INFORMATION
  Report Type: Spontaneous
  Country: US (occurrence: US)
  Receive Date: 20210305
  Receipt Date: 20210305
  Transmission Date: 20210420
  Serious: No
  Sender: FDA-Public Use
  Company Number: US-MYLANLABS-2021M1012276

PATIENT
  Sex: Female

DRUGS (1)
  1. ESTRADIOL VAGINAL CREAM USP [Suspect]
     Active Substance: ESTRADIOL
     Indication: PAIN
     Dosage: UNK
     Route: 067

REACTIONS (2)
  - Off label use [Not Recovered/Not Resolved]
  - Device issue [Not Recovered/Not Resolved]
